FAERS Safety Report 16416276 (Version 1)
Quarter: 2019Q2

REPORT INFORMATION
  Report Type: Report from Study
  Country: US (occurrence: US)
  Receive Date: 20190611
  Receipt Date: 20190611
  Transmission Date: 20190711
  Serious: Yes (Other)
  Sender: FDA-Public Use
  Company Number: US-TESARO-2019-TSO01279-US

PATIENT
  Age: 74 Year
  Sex: Female
  Weight: 74 kg

DRUGS (5)
  1. OMEPRAZOLE. [Concomitant]
     Active Substance: OMEPRAZOLE
     Indication: PRODUCT USED FOR UNKNOWN INDICATION
     Dosage: UNK
  2. ZEJULA [Suspect]
     Active Substance: NIRAPARIB
     Indication: OVARIAN CANCER
     Dosage: 100 MG, QPM WITHOUT FOOD
     Route: 048
     Dates: start: 20190314
  3. CALCIUM + VIT D [Concomitant]
     Active Substance: CALCIUM\VITAMIN D
     Indication: PRODUCT USED FOR UNKNOWN INDICATION
     Dosage: UNK
  4. VITAMIN C [Concomitant]
     Active Substance: ASCORBIC ACID
     Indication: PRODUCT USED FOR UNKNOWN INDICATION
     Dosage: UNK
  5. VITAMIN B12 [Concomitant]
     Active Substance: CYANOCOBALAMIN
     Indication: PRODUCT USED FOR UNKNOWN INDICATION
     Dosage: UNK

REACTIONS (16)
  - Amnesia [Unknown]
  - Feeling abnormal [Recovering/Resolving]
  - Dizziness [Not Recovered/Not Resolved]
  - Nausea [Recovering/Resolving]
  - Back pain [Not Recovered/Not Resolved]
  - Fatigue [Not Recovered/Not Resolved]
  - Underdose [Unknown]
  - Malaise [Not Recovered/Not Resolved]
  - Asthenia [Not Recovered/Not Resolved]
  - Insomnia [Not Recovered/Not Resolved]
  - Tremor [Recovering/Resolving]
  - Pain [Not Recovered/Not Resolved]
  - Blood sodium decreased [Unknown]
  - Dehydration [Not Recovered/Not Resolved]
  - Pain in extremity [Unknown]
  - Neck mass [Unknown]

NARRATIVE: CASE EVENT DATE: 2019
